FAERS Safety Report 5592982-X (Version None)
Quarter: 2008Q1

REPORT INFORMATION
  Report Type: 
  Country: None (occurrence: None)
  Receive Date: 20080114
  Receipt Date: 20080114
  Transmission Date: 20080703
  Serious: Yes (Other)
  Sender: FDA-Public Use
  Company Number: None

PATIENT
  Age: 51 Year
  Sex: Female
  Weight: 62.5964 kg

DRUGS (1)
  1. CHANTIX [Suspect]
     Indication: SMOKING CESSATION THERAPY
     Dosage: TAKE 1 TABLET FOR 3 DAYS THEN
     Dates: start: 20071218, end: 20071222

REACTIONS (8)
  - ABNORMAL DREAMS [None]
  - AGGRESSION [None]
  - DEPRESSION [None]
  - DISORIENTATION [None]
  - FEELING ABNORMAL [None]
  - NAUSEA [None]
  - SUICIDAL IDEATION [None]
  - URTICARIA [None]
